FAERS Safety Report 6100610-X (Version None)
Quarter: 2009Q1

REPORT INFORMATION
  Report Type: 
  Country: None (occurrence: None)
  Receive Date: 20090227
  Receipt Date: 20090227
  Transmission Date: 20090719
  Serious: Yes (Life-Threatening, Hospitalization, Other)
  Sender: FDA-Public Use
  Company Number: None

PATIENT
  Age: 53 Year
  Sex: Male
  Weight: 90.7194 kg

DRUGS (1)
  1. ENBREL [Suspect]
     Indication: PSORIATIC ARTHROPATHY
     Dosage: 50 MG/ML 1/WEEK SQ
     Route: 058
     Dates: start: 20030101, end: 20061010

REACTIONS (3)
  - BACTERIAL INFECTION [None]
  - LOCALISED INFECTION [None]
  - MENINGITIS VIRAL [None]
